FAERS Safety Report 18096904 (Version 4)
Quarter: 2024Q2

REPORT INFORMATION
  Report Type: Spontaneous
  Country: US (occurrence: US)
  Receive Date: 20200731
  Receipt Date: 20240422
  Transmission Date: 20240716
  Serious: Yes (Hospitalization, Other)
  Sender: FDA-Public Use
  Company Number: US-GILEAD-2020-0486667

PATIENT
  Age: 63 Year
  Sex: Female
  Weight: 71.202 kg

DRUGS (53)
  1. VIREAD [Suspect]
     Active Substance: TENOFOVIR DISOPROXIL FUMARATE
     Indication: HIV infection
     Dosage: UNK
     Route: 048
     Dates: start: 1990, end: 201706
  2. VIREAD [Suspect]
     Active Substance: TENOFOVIR DISOPROXIL FUMARATE
     Dosage: UNK
     Route: 048
     Dates: start: 2001, end: 20141121
  3. VIREAD [Suspect]
     Active Substance: TENOFOVIR DISOPROXIL FUMARATE
     Dosage: UNK
     Route: 048
     Dates: start: 2001, end: 201412
  4. VIREAD [Suspect]
     Active Substance: TENOFOVIR DISOPROXIL FUMARATE
     Dosage: UNK
     Route: 048
     Dates: start: 2001, end: 2018
  5. ATRIPLA [Suspect]
     Active Substance: EFAVIRENZ\EMTRICITABINE\TENOFOVIR DISOPROXIL FUMARATE
     Indication: HIV infection
     Dosage: UNK
     Route: 048
     Dates: start: 20110310, end: 20180703
  6. GENVOYA [Concomitant]
     Active Substance: COBICISTAT\ELVITEGRAVIR\EMTRICITABINE\TENOFOVIR ALAFENAMIDE FUMARATE
  7. CRIXIVAN [Concomitant]
     Active Substance: INDINAVIR SULFATE
  8. EPIVIR [Concomitant]
     Active Substance: LAMIVUDINE
  9. JULUCA [Concomitant]
     Active Substance: DOLUTEGRAVIR SODIUM\RILPIVIRINE HYDROCHLORIDE
  10. LEXIVA [Concomitant]
     Active Substance: FOSAMPRENAVIR CALCIUM
  11. NORVIR [Concomitant]
     Active Substance: RITONAVIR
  12. VIRACEPT [Concomitant]
     Active Substance: NELFINAVIR MESYLATE
  13. CLONIDINE [Concomitant]
     Active Substance: CLONIDINE
  14. HYDROCHLOROTHIAZIDE [Concomitant]
     Active Substance: HYDROCHLOROTHIAZIDE
  15. LEVEMIR [Concomitant]
     Active Substance: INSULIN DETEMIR
  16. NOVOLOG [Concomitant]
     Active Substance: INSULIN ASPART
  17. AMLODIPINE [Concomitant]
     Active Substance: AMLODIPINE BESYLATE
  18. LOSARTAN [Concomitant]
     Active Substance: LOSARTAN
  19. LEVOTHYROXINE [Concomitant]
     Active Substance: LEVOTHYROXINE\LEVOTHYROXINE SODIUM
  20. PRAVASTATIN [Concomitant]
     Active Substance: PRAVASTATIN
  21. ASPIRIN [Concomitant]
     Active Substance: ASPIRIN
  22. DOCUSATE [Concomitant]
     Active Substance: DOCUSATE
  23. METOPROLOL [Concomitant]
     Active Substance: METOPROLOL
  24. INSULIN NOS [Concomitant]
     Active Substance: INSULIN NOS
  25. FENOFIBRATE [Concomitant]
     Active Substance: FENOFIBRATE
  26. ZOLPIDEM [Concomitant]
     Active Substance: ZOLPIDEM TARTRATE
  27. CYCLOBENZAPRINE [Concomitant]
     Active Substance: CYCLOBENZAPRINE
  28. FERROUS SULFATE [Concomitant]
     Active Substance: FERROUS SULFATE
  29. DIAZEPAM [Concomitant]
     Active Substance: DIAZEPAM
  30. CALCITRIOL [Concomitant]
     Active Substance: CALCITRIOL
  31. VITAMIN D NOS [Concomitant]
     Active Substance: VITAMIN D NOS
  32. OMEPRAZOLE [Concomitant]
     Active Substance: OMEPRAZOLE
  33. PROCRIT [Concomitant]
     Active Substance: ERYTHROPOIETIN
  34. REPAGLINIDE [Concomitant]
     Active Substance: REPAGLINIDE
  35. PREDNISONE [Concomitant]
     Active Substance: PREDNISONE
  36. PROPRANOLOL HYDROCHLORIDE [Concomitant]
     Active Substance: PROPRANOLOL HYDROCHLORIDE
  37. MELOXICAM [Concomitant]
     Active Substance: MELOXICAM
  38. LEUCOVORIN [Concomitant]
     Active Substance: LEUCOVORIN\LEUCOVORIN CALCIUM
  39. DARAPRIM [Concomitant]
     Active Substance: PYRIMETHAMINE
  40. REGLAN [Concomitant]
     Active Substance: METOCLOPRAMIDE HYDROCHLORIDE
  41. ALLOPURINOL [Concomitant]
     Active Substance: ALLOPURINOL
  42. GEMFIBROZIL [Concomitant]
     Active Substance: GEMFIBROZIL
  43. SULFAMETHOXAZOLE [Concomitant]
     Active Substance: SULFAMETHOXAZOLE
  44. LABETALOL [Concomitant]
     Active Substance: LABETALOL\LABETALOL HYDROCHLORIDE
  45. CARAFATE [Concomitant]
     Active Substance: SUCRALFATE
  46. LINZESS [Concomitant]
     Active Substance: LINACLOTIDE
  47. HYDRALAZINE [Concomitant]
     Active Substance: HYDRALAZINE HYDROCHLORIDE
  48. TRAZODONE [Concomitant]
     Active Substance: TRAZODONE HYDROCHLORIDE
  49. FUROSEMIDE [Concomitant]
     Active Substance: FUROSEMIDE
  50. NIFEDIPINE [Concomitant]
     Active Substance: NIFEDIPINE
  51. MECLIZINE HYDROCHLORIDE [Concomitant]
     Active Substance: MECLIZINE HYDROCHLORIDE
  52. BENZONATATE [Concomitant]
     Active Substance: BENZONATATE
  53. ATORVASTATIN [Concomitant]
     Active Substance: ATORVASTATIN

REACTIONS (13)
  - Chronic kidney disease [Not Recovered/Not Resolved]
  - Acute kidney injury [Not Recovered/Not Resolved]
  - Renal failure [Unknown]
  - Chronic kidney disease [Not Recovered/Not Resolved]
  - Nephrogenic anaemia [Not Recovered/Not Resolved]
  - Tooth loss [Not Recovered/Not Resolved]
  - Bone density decreased [Unknown]
  - Dental caries [Not Recovered/Not Resolved]
  - Bone marrow disorder [Not Recovered/Not Resolved]
  - Pain [Not Recovered/Not Resolved]
  - Emotional distress [Not Recovered/Not Resolved]
  - Anxiety [Not Recovered/Not Resolved]
  - Anhedonia [Not Recovered/Not Resolved]

NARRATIVE: CASE EVENT DATE: 20080101
